FAERS Safety Report 5144388-5 (Version None)
Quarter: 2006Q4

REPORT INFORMATION
  Report Type: 
  Country: None (occurrence: None)
  Receive Date: 20061030
  Receipt Date: 20061025
  Transmission Date: 20070319
  Serious: Yes (Death)
  Sender: FDA-Public Use
  Company Number: S06-USA-04490-01

PATIENT
  Age: 53 Year
  Sex: Female

DRUGS (2)
  1. LEXAPRO [Suspect]
     Indication: DEPRESSION
     Dosage: 10 MG QD PO
     Route: 048
     Dates: start: 20040310, end: 20040313
  2. LEXAPRO [Suspect]
     Indication: INSOMNIA
     Dosage: 10 MG QD PO
     Route: 048
     Dates: start: 20040310, end: 20040313

REACTIONS (13)
  - AFFECTIVE DISORDER [None]
  - COMPLETED SUICIDE [None]
  - DEPRESSION [None]
  - DISTURBANCE IN ATTENTION [None]
  - EUPHORIC MOOD [None]
  - FEELING ABNORMAL [None]
  - INJURY ASPHYXIATION [None]
  - INSOMNIA [None]
  - MENTAL DISORDER [None]
  - PARANOIA [None]
  - SELF ESTEEM DECREASED [None]
  - SELF INJURIOUS BEHAVIOUR [None]
  - SUICIDAL IDEATION [None]
